FAERS Safety Report 24267045 (Version 1)
Quarter: 2024Q3

REPORT INFORMATION
  Report Type: Spontaneous
  Country: FR (occurrence: FR)
  Receive Date: 20240830
  Receipt Date: 20240830
  Transmission Date: 20241017
  Serious: Yes (Other)
  Sender: AUROBINDO
  Company Number: FR-AFSSAPS-TS2024000917

PATIENT
  Sex: Male

DRUGS (2)
  1. LIDOCAINE [Suspect]
     Active Substance: LIDOCAINE
     Indication: Dental local anaesthesia
     Dosage: 800 MILLIGRAM
     Route: 004
     Dates: start: 20240716, end: 20240716
  2. EPINEPHRINE [Concomitant]
     Active Substance: EPINEPHRINE
     Indication: Dental local anaesthesia
     Dosage: 1 DOSAGE FORM
     Route: 004
     Dates: start: 20240716, end: 20240716

REACTIONS (3)
  - Asthenia [Recovered/Resolved]
  - Loss of consciousness [Recovered/Resolved]
  - Seizure [Recovered/Resolved]

NARRATIVE: CASE EVENT DATE: 20240716
